FAERS Safety Report 10031976 (Version 1)
Quarter: 2014Q1

REPORT INFORMATION
  Report Type: Spontaneous
  Country: US (occurrence: US)
  Receive Date: 20140324
  Receipt Date: 20140324
  Transmission Date: 20141002
  Serious: No
  Sender: FDA-Public Use
  Company Number: US-009507513-1403USA007867

PATIENT
  Sex: Male

DRUGS (2)
  1. CLARITIN-D-24 [Suspect]
     Indication: PRODUCT USED FOR UNKNOWN INDICATION
     Dosage: UNK, UNKNOWN
     Route: 048
     Dates: start: 20140312
  2. VIDAZA [Suspect]
     Indication: NEOPLASM MALIGNANT
     Dosage: UNK, UNKNOWN

REACTIONS (4)
  - Blood count abnormal [Unknown]
  - Dizziness [Unknown]
  - Heart rate increased [Unknown]
  - Blood pressure decreased [Unknown]
